FAERS Safety Report 14258602 (Version 1)
Quarter: 2017Q4

REPORT INFORMATION
  Report Type: Spontaneous
  Country: US (occurrence: US)
  Receive Date: 20171205
  Receipt Date: 20171205
  Transmission Date: 20180321
  Serious: Yes (Disabling)
  Sender: FDA-Public Use
  Company Number: None

PATIENT
  Sex: Female
  Weight: 58.5 kg

DRUGS (10)
  1. LISINOPRIL. [Concomitant]
     Active Substance: LISINOPRIL
  2. ALBUTERAL INHALER [Concomitant]
  3. AMLODIPINE [Concomitant]
     Active Substance: AMLODIPINE BESYLATE
  4. TRIAMCINALONE [Suspect]
     Active Substance: TRIAMCINOLONE
     Indication: ECZEMA
     Route: 061
  5. CLOBETASOL [Suspect]
     Active Substance: CLOBETASOL
     Indication: ECZEMA
     Route: 061
  6. MVI [Concomitant]
     Active Substance: VITAMINS
  7. CLONIDINE. [Concomitant]
     Active Substance: CLONIDINE
  8. SINGULAIR [Concomitant]
     Active Substance: MONTELUKAST SODIUM
  9. VITAMIN B COMPLEX [Concomitant]
     Active Substance: CYANOCOBALAMIN\DEXPANTHENOL\NIACINAMIDE\PYRIDOXINE HYDROCHLORIDE\RIBOFLAVIN 5^-PHOSPHATE SODIUM\THIAMINE HYDROCHLORIDE\VITAMIN B COMPLEX
  10. MAGNESIUM OXIDE. [Concomitant]
     Active Substance: MAGNESIUM OXIDE

REACTIONS (4)
  - Skin atrophy [None]
  - Skin disorder [None]
  - Increased tendency to bruise [None]
  - Laceration [None]
